FAERS Safety Report 10215909 (Version 1)
Quarter: 2014Q2

REPORT INFORMATION
  Report Type: Spontaneous
  Country: US (occurrence: None)
  Receive Date: 20140603
  Receipt Date: 20140603
  Transmission Date: 20141212
  Serious: Yes (Hospitalization)
  Sender: FDA-Public Use
  Company Number: None

PATIENT
  Age: 66 Year
  Sex: Female

DRUGS (11)
  1. PEMETREXED 500MG/M2 [Suspect]
     Indication: LUNG NEOPLASM MALIGNANT
     Dosage: IV?Q 4 WEEKS
     Route: 042
  2. ASPIRIN [Concomitant]
  3. CLARTIN [Concomitant]
  4. COMPAZINE [Concomitant]
  5. COQ10 [Concomitant]
  6. FOLIC ACID [Concomitant]
  7. MVI [Concomitant]
  8. PROBIOTIC [Concomitant]
  9. TYLENOL [Concomitant]
  10. VITAMIN C [Concomitant]
  11. ZYRTEC [Concomitant]

REACTIONS (6)
  - Dizziness [None]
  - Gait disturbance [None]
  - Fall [None]
  - Leukoencephalopathy [None]
  - Myopathy [None]
  - Back pain [None]
